FAERS Safety Report 5160212-9 (Version None)
Quarter: 2006Q4

REPORT INFORMATION
  Report Type: 
  Country: None (occurrence: None)
  Receive Date: 20061120
  Receipt Date: 20061012
  Transmission Date: 20070319
  Serious: Yes (Other)
  Sender: FDA-Public Use
  Company Number: A03200606255

PATIENT
  Age: 72 Year
  Sex: Male
  Weight: 76.6579 kg

DRUGS (13)
  1. PLAVIX [Suspect]
     Indication: ISCHAEMIC HEART DISEASE PROPHYLAXIS
     Dosage: ORAL
     Route: 048
  2. ASPIRIN [Suspect]
     Indication: ISCHAEMIC HEART DISEASE PROPHYLAXIS
     Dosage: 325 MG QD - ORAL
     Route: 048
     Dates: start: 19820301, end: 19990315
  3. ISOSORBIDE MONONITRATE [Concomitant]
  4. PRAVASTATIN SODIUM [Concomitant]
  5. AMLODIPINE BESYLATE [Concomitant]
  6. PROPOXYPHENE HCL AND ACETAMINOPHEN [Concomitant]
  7. ATORVASTATIN CALCIUM [Concomitant]
  8. VITAMIN CAP [Concomitant]
  9. METOPROLOL SUCCINATE [Concomitant]
  10. WARFARIN SODIUM [Concomitant]
  11. GLIPIZIDE [Concomitant]
  12. PRAVASTATIN SODIUM [Concomitant]
  13. HYDROXYUREA [Concomitant]

REACTIONS (3)
  - GASTRIC PERFORATION [None]
  - HAEMATOCHEZIA [None]
  - MELAENA [None]
